FAERS Safety Report 6824047-0 (Version None)
Quarter: 2010Q3

REPORT INFORMATION
  Report Type: 
  Country: None (occurrence: None)
  Receive Date: 20100708
  Receipt Date: 20070112
  Transmission Date: 20110219
  Serious: No
  Sender: FDA-Public Use
  Company Number: US-PFIZER INC-2006117617

PATIENT
  Sex: Female
  Weight: 73.48 kg

DRUGS (15)
  1. CHANTIX [Suspect]
     Indication: SMOKING CESSATION THERAPY
     Route: 048
     Dates: start: 20060919
  2. CHANTIX [Suspect]
     Indication: TOBACCO ABUSE
  3. ATIVAN [Concomitant]
  4. PAMELOR [Concomitant]
  5. WELLBUTRIN [Concomitant]
  6. PAXIL [Concomitant]
  7. DAYPRO [Concomitant]
  8. LYRICA [Concomitant]
  9. AGGRENOX [Concomitant]
  10. PREVACID [Concomitant]
  11. VYTORIN [Concomitant]
  12. HYDROCHLOROTHIAZIDE [Concomitant]
  13. ABILIFY [Concomitant]
  14. SULFASALAZINE [Concomitant]
  15. VALSARTAN [Concomitant]

REACTIONS (1)
  - NAUSEA [None]
